FAERS Safety Report 10032190 (Version 1)
Quarter: 2014Q1

REPORT INFORMATION
  Report Type: Spontaneous
  Country: US (occurrence: US)
  Receive Date: 20140324
  Receipt Date: 20140324
  Transmission Date: 20141002
  Serious: Yes (Hospitalization)
  Sender: FDA-Public Use
  Company Number: US-009507513-1403USA007606

PATIENT
  Sex: 0

DRUGS (1)
  1. REBETOL [Suspect]
     Dosage: UNK
     Route: 048

REACTIONS (2)
  - Renal impairment [Unknown]
  - Off label use [Unknown]
